FAERS Safety Report 9996203 (Version 4)
Quarter: 2014Q3

REPORT INFORMATION
  Report Type: Report from Study
  Country: JP (occurrence: JP)
  Receive Date: 20140311
  Receipt Date: 20140811
  Transmission Date: 20150326
  Serious: Yes (Hospitalization)
  Sender: FDA-Public Use
  Company Number: JP-PFIZER INC-2014021493

PATIENT
  Age: 73 Year
  Sex: Male
  Weight: 72.8 kg

DRUGS (6)
  1. METHYCOOL [Concomitant]
     Active Substance: METHYLCOBALAMIN
     Route: 048
  2. DAISPAS [Concomitant]
     Route: 048
  3. MOHRUS [Concomitant]
     Active Substance: KETOPROFEN
     Route: 062
  4. MAGMITT [Concomitant]
     Active Substance: MAGNESIUM OXIDE
     Indication: CONSTIPATION
     Route: 048
  5. REBAMIPIDE [Concomitant]
     Active Substance: REBAMIPIDE
     Route: 048
  6. XELJANZ [Suspect]
     Active Substance: TOFACITINIB CITRATE
     Indication: RHEUMATOID ARTHRITIS
     Dosage: 5 MG, 2X/DAY
     Route: 048
     Dates: start: 20131021

REACTIONS (2)
  - Lumbar spinal stenosis [Recovering/Resolving]
  - Condition aggravated [Recovering/Resolving]

NARRATIVE: CASE EVENT DATE: 20140122
